FAERS Safety Report 6993926-6 (Version None)
Quarter: 2010Q3

REPORT INFORMATION
  Report Type: 
  Country: None (occurrence: None)
  Receive Date: 20100917
  Receipt Date: 20100701
  Transmission Date: 20110219
  Serious: No
  Sender: FDA-Public Use
  Company Number: US-ASTRAZENECA-2010SE15696

PATIENT
  Age: 34 Year
  Sex: Female
  Weight: 83.9 kg

DRUGS (3)
  1. SEROQUEL [Suspect]
     Indication: BIPOLAR DISORDER
     Route: 048
     Dates: start: 20050101, end: 20100101
  2. SEROQUEL [Suspect]
     Route: 048
     Dates: start: 20100101, end: 20100601
  3. EFFEXOR XR [Concomitant]

REACTIONS (12)
  - AGITATION [None]
  - CONFUSIONAL STATE [None]
  - DEPRESSION [None]
  - DIARRHOEA [None]
  - DRUG DOSE OMISSION [None]
  - EATING DISORDER [None]
  - FEELING ABNORMAL [None]
  - IMPAIRED WORK ABILITY [None]
  - INSOMNIA [None]
  - SLEEP DISORDER [None]
  - VOMITING [None]
  - WEIGHT INCREASED [None]
